FAERS Safety Report 16138513 (Version 1)
Quarter: 2019Q1

REPORT INFORMATION
  Report Type: Spontaneous
  Country: US (occurrence: US)
  Receive Date: 20190330
  Receipt Date: 20190330
  Transmission Date: 20190418
  Serious: Yes (Hospitalization, Other)
  Sender: FDA-Public Use
  Company Number: US-SHILPA MEDICARE LIMITED-SML-US-2019-00091

PATIENT
  Age: 42 Year
  Sex: Female

DRUGS (1)
  1. CAPECITABINE, UNKNOWN [Suspect]
     Active Substance: CAPECITABINE
     Indication: CHOLANGIOCARCINOMA
     Dosage: TWICE DAILY FOR 14-DAY CYCLES REPEATING EVERY 28 DAYS
     Route: 065

REACTIONS (5)
  - Haematochezia [Unknown]
  - Cytomegalovirus gastrointestinal infection [Unknown]
  - Product use in unapproved indication [Unknown]
  - Diarrhoea [Recovered/Resolved]
  - Large intestinal ulcer [Unknown]
